FAERS Safety Report 12289758 (Version 1)
Quarter: 2016Q2

REPORT INFORMATION
  Report Type: Spontaneous
  Country: FR (occurrence: FR)
  Receive Date: 20160421
  Receipt Date: 20160421
  Transmission Date: 20160815
  Serious: Yes (Other)
  Sender: FDA-Public Use
  Company Number: FR-SYMPLMED PHARMACEUTICALS-2016SYMPLMED000197

PATIENT

DRUGS (4)
  1. COVERSYL [Suspect]
     Active Substance: PERINDOPRIL
     Indication: HYPERTENSION
     Dosage: UNK
     Route: 048
  2. FLUDEX                             /00340101/ [Suspect]
     Active Substance: INDAPAMIDE
     Indication: HYPERTENSION
     Dosage: UNK
     Route: 048
  3. TAHOR [Concomitant]
     Active Substance: ATORVASTATIN CALCIUM
     Indication: ISCHAEMIC STROKE
     Dosage: 40 MG, QD
  4. METFORMINE [Concomitant]
     Active Substance: METFORMIN HYDROCHLORIDE
     Indication: PRODUCT USED FOR UNKNOWN INDICATION
     Dosage: 150 MG, BID

REACTIONS (2)
  - Hypotension [Unknown]
  - Syncope [Unknown]

NARRATIVE: CASE EVENT DATE: 2016
